FAERS Safety Report 4944279-6 (Version None)
Quarter: 2006Q1

REPORT INFORMATION
  Report Type: 
  Country: None (occurrence: None)
  Receive Date: 20060315
  Receipt Date: 20051130
  Transmission Date: 20060701
  Serious: Yes (Hospitalization)
  Sender: FDA-Public Use
  Company Number: BE-GLAXOSMITHKLINE-B0402405A

PATIENT
  Age: 59 Year
  Sex: Male
  Weight: 96 kg

DRUGS (5)
  1. AVANDIA [Suspect]
     Dosage: 4MG PER DAY
     Route: 048
     Dates: start: 20051030, end: 20051102
  2. METFORMIN [Concomitant]
     Dosage: 850MG THREE TIMES PER DAY
     Route: 048
     Dates: start: 20040422
  3. CO APROVEL [Concomitant]
     Dosage: 300MG PER DAY
     Route: 048
  4. CARDIOASPIRINE [Concomitant]
     Dosage: 100MG PER DAY
     Route: 048
     Dates: start: 20040422
  5. LIPITOR [Concomitant]
     Dosage: 40MG PER DAY
     Route: 048
     Dates: start: 20040422

REACTIONS (4)
  - ATRIAL FIBRILLATION [None]
  - DYSPNOEA [None]
  - MALAISE [None]
  - PNEUMONIA [None]
